FAERS Safety Report 11097957 (Version 1)
Quarter: 2015Q2

REPORT INFORMATION
  Report Type: Other
  Country: US (occurrence: JP)
  Receive Date: 20150507
  Receipt Date: 20150507
  Transmission Date: 20150821
  Serious: Yes (Hospitalization)
  Sender: FDA-Public Use
  Company Number: US-SHIONOGI, INC-2015000455

PATIENT
  Age: 35 Year
  Sex: Female

DRUGS (7)
  1. METHYLPREDNISOLONE. [Suspect]
     Active Substance: METHYLPREDNISOLONE
     Indication: PRODUCT USED FOR UNKNOWN INDICATION
     Dosage: 1 G, PER DAY
     Route: 065
  2. CICLOSPORIN [Suspect]
     Active Substance: CYCLOSPORINE
     Indication: PRODUCT USED FOR UNKNOWN INDICATION
     Dosage: 200 MG, PER DAY
     Route: 065
  3. PREDNISOLONE. [Suspect]
     Active Substance: PREDNISOLONE
     Indication: PRODUCT USED FOR UNKNOWN INDICATION
     Dosage: 50 MG, PER DAY
     Route: 065
  4. TACROLIMUS. [Suspect]
     Active Substance: TACROLIMUS
     Indication: PRODUCT USED FOR UNKNOWN INDICATION
     Dosage: 3 MG, PER DAY
     Route: 065
  5. DORIPENEM [Suspect]
     Active Substance: DORIPENEM
     Indication: PRODUCT USED FOR UNKNOWN INDICATION
     Dosage: 1.5 G, PER DAY
     Route: 065
  6. PREDNISOLONE. [Suspect]
     Active Substance: PREDNISOLONE
     Dosage: 50 MG, PER DAY
     Route: 065
  7. MINOCYCLINE [Suspect]
     Active Substance: MINOCYCLINE\MINOCYCLINE HYDROCHLORIDE
     Indication: PRODUCT USED FOR UNKNOWN INDICATION
     Dosage: 200 MG, PER DAY
     Route: 065

REACTIONS (9)
  - C-reactive protein increased [Unknown]
  - Inflammation [Unknown]
  - Leukopenia [Unknown]
  - Drug resistance [Unknown]
  - Drug ineffective [Unknown]
  - Histiocytosis haematophagic [Unknown]
  - General physical health deterioration [Unknown]
  - Pyrexia [Unknown]
  - Serum ferritin increased [Unknown]
